FAERS Safety Report 21021850 (Version 1)
Quarter: 2022Q2

REPORT INFORMATION
  Report Type: Spontaneous
  Country: US (occurrence: None)
  Receive Date: 20220628
  Receipt Date: 20220628
  Transmission Date: 20220721
  Serious: No
  Sender: FDA-Public Use
  Company Number: None

PATIENT
  Age: 32 Year
  Sex: Female

DRUGS (1)
  1. LEUPROLIDE [Suspect]
     Active Substance: LEUPROLIDE
     Dosage: OTHER QUANTITY : 40 UNITS;?
     Route: 058
     Dates: start: 20220624

REACTIONS (1)
  - Product storage error [None]

NARRATIVE: CASE EVENT DATE: 20220628
